FAERS Safety Report 9563884 (Version 1)
Quarter: 2013Q3

REPORT INFORMATION
  Report Type: Spontaneous
  Country: GB (occurrence: GB)
  Receive Date: 20130927
  Receipt Date: 20130927
  Transmission Date: 20140515
  Serious: Yes (Other)
  Sender: FDA-Public Use
  Company Number: GB-ROCHE-1280476

PATIENT
  Age: 48 Year
  Sex: Female

DRUGS (6)
  1. ROACTEMRA [Suspect]
     Indication: RHEUMATOID ARTHRITIS
     Dosage: 1 DF
     Route: 065
     Dates: start: 20110606, end: 20110606
  2. ROACTEMRA [Suspect]
     Dosage: 1 DF
     Route: 042
     Dates: start: 20110630, end: 20110630
  3. AMITRIPTYLINE [Concomitant]
     Indication: RHEUMATOID ARTHRITIS
     Route: 048
  4. MELOXICAM [Concomitant]
     Indication: RHEUMATOID ARTHRITIS
     Route: 065
  5. MELOXICAM [Concomitant]
     Route: 065
  6. PREDNISOLONE [Concomitant]
     Indication: RHEUMATOID ARTHRITIS
     Route: 065
     Dates: start: 20110804, end: 20110818

REACTIONS (5)
  - Cough [Recovered/Resolved]
  - Dysphonia [Not Recovered/Not Resolved]
  - Lower respiratory tract infection [Recovered/Resolved]
  - Vocal cord polyp [Not Recovered/Not Resolved]
  - Oropharyngeal pain [Recovered/Resolved]
